FAERS Safety Report 8548667-0 (Version None)
Quarter: 2012Q3

REPORT INFORMATION
  Report Type: 
  Country: None (occurrence: None)
  Receive Date: 20120730
  Receipt Date: 20120717
  Transmission Date: 20120928
  Serious: Yes (Hospitalization, Other)
  Sender: FDA-Public Use
  Company Number: RS-COVIDIEN/TYCO HEALTHCARE/MALLINCKRODT-T201202721

PATIENT
  Age: 66 Year
  Sex: Female
  Weight: 50 kg

DRUGS (8)
  1. FENTANYL-100 [Suspect]
     Indication: PAIN
     Dosage: UNK
     Route: 062
     Dates: start: 20120218, end: 20120218
  2. BERODUAL [Concomitant]
     Dosage: UNK
  3. TRAMADOL HYDROCHLORIDE [Suspect]
     Indication: PAIN
     Dosage: UNK
     Dates: start: 20120101, end: 20120101
  4. MEGACE [Concomitant]
     Route: 048
  5. BECLOFORTE [Concomitant]
     Dosage: UNK
  6. ORAMORPH SR [Concomitant]
     Indication: BONE PAIN
  7. EXALGO [Suspect]
     Indication: CANCER PAIN
     Dosage: 16 MG, QD
     Route: 048
     Dates: start: 20120218, end: 20120220
  8. ACETAMINOPHEN [Concomitant]
     Indication: BONE PAIN
     Dosage: UNK

REACTIONS (4)
  - CONDITION AGGRAVATED [None]
  - ADVERSE DRUG REACTION [None]
  - ACUTE PULMONARY OEDEMA [None]
  - HYPERSENSITIVITY [None]
